FAERS Safety Report 8832930 (Version 1)
Quarter: 2012Q4

REPORT INFORMATION
  Report Type: 
  Country: DK (occurrence: DK)
  Receive Date: 20121010
  Receipt Date: 20121010
  Transmission Date: 20130627
  Serious: Yes (Hospitalization, Other)
  Sender: FDA-Public Use
  Company Number: PHHY2012DK064194

PATIENT
  Sex: Female

DRUGS (2)
  1. ATORVASTATIN [Suspect]
     Dosage: 1 DF, daily dose
     Route: 048
     Dates: start: 20120521
  2. GUARMIN [Concomitant]

REACTIONS (2)
  - Paraesthesia [Recovering/Resolving]
  - Spinal cord compression [Unknown]
